FAERS Safety Report 6846396-2 (Version None)
Quarter: 2010Q3

REPORT INFORMATION
  Report Type: 
  Country: None (occurrence: None)
  Receive Date: 20100715
  Receipt Date: 20071102
  Transmission Date: 20110219
  Serious: No
  Sender: FDA-Public Use
  Company Number: US-PFIZER INC-2007077022

PATIENT
  Sex: Male

DRUGS (2)
  1. CHANTIX [Suspect]
     Dates: start: 20070831
  2. NICORETTE [Interacting]

REACTIONS (4)
  - DRUG INTERACTION [None]
  - SLEEP TALKING [None]
  - SOMNAMBULISM [None]
  - THINKING ABNORMAL [None]
